FAERS Safety Report 4850595-9 (Version None)
Quarter: 2005Q4

REPORT INFORMATION
  Report Type: 
  Country: None (occurrence: None)
  Receive Date: 20051208
  Receipt Date: 20051125
  Transmission Date: 20060501
  Serious: Yes (Death, Other)
  Sender: FDA-Public Use
  Company Number: 2005160891

PATIENT
  Age: 12 Month
  Sex: Male

DRUGS (12)
  1. VIAGRA [Suspect]
     Indication: PERSISTENT FOETAL CIRCULATION
     Dosage: 5.12 MG/KG, ORAL
     Route: 048
     Dates: start: 20030912, end: 20040411
  2. BERAPROST (BERAPROST) [Suspect]
     Indication: PERSISTENT FOETAL CIRCULATION
     Dosage: 30 MCG, ORAL
     Route: 048
     Dates: start: 20040218, end: 20040325
  3. FLOLAN [Suspect]
     Indication: PERSISTENT FOETAL CIRCULATION
     Dates: start: 20040325, end: 20040411
  4. NIFEDIPINE [Suspect]
     Indication: PERSISTENT FOETAL CIRCULATION
     Dosage: 4 MG, ORAL
     Route: 048
     Dates: start: 20040323, end: 20040325
  5. LASIX [Concomitant]
  6. ALDACTONE [Concomitant]
  7. ACARDI (PIMOBENDAN) [Concomitant]
  8. WARFARIN SODIUM [Concomitant]
  9. DIGOXIN [Concomitant]
  10. SOLITA-T3 INJECTION (POTASSIUM CHLORIDE, SODIUM CHLORIDE, SODIUM LACTA [Concomitant]
  11. HEPARIN [Concomitant]
  12. CORETEC (OLPRINONE HYDROCHLORIDE) [Concomitant]

REACTIONS (1)
  - CARDIOPULMONARY FAILURE [None]
